FAERS Safety Report 6612161-4 (Version None)
Quarter: 2010Q1

REPORT INFORMATION
  Report Type: 
  Country: None (occurrence: None)
  Receive Date: 20100302
  Receipt Date: 20100302
  Transmission Date: 20100710
  Serious: Yes (Hospitalization)
  Sender: FDA-Public Use
  Company Number: None

PATIENT
  Age: 54 Year
  Sex: Female
  Weight: 158 kg

DRUGS (1)
  1. LEVAQUIN [Suspect]
     Indication: UPPER RESPIRATORY TRACT INFECTION
     Dosage: 500MG BID PO
     Route: 048
     Dates: start: 20100107, end: 20100110

REACTIONS (4)
  - DYSPNOEA EXERTIONAL [None]
  - ELECTROCARDIOGRAM QT PROLONGED [None]
  - SYNCOPE [None]
  - VENTRICULAR TACHYCARDIA [None]
